FAERS Safety Report 9517951 (Version 2)
Quarter: 2013Q4

REPORT INFORMATION
  Report Type: Spontaneous
  Country: US (occurrence: US)
  Receive Date: 20130912
  Receipt Date: 20131023
  Transmission Date: 20140711
  Serious: No
  Sender: FDA-Public Use
  Company Number: US-PFIZER INC-2013257700

PATIENT
  Age: 54 Year
  Sex: Male
  Weight: 82.18 kg

DRUGS (1)
  1. SUTENT [Suspect]
     Dosage: 50 MG DAILY

REACTIONS (5)
  - Skin exfoliation [Unknown]
  - White blood cell count decreased [Unknown]
  - Red blood cell count decreased [Unknown]
  - Musculoskeletal pain [Unknown]
  - Musculoskeletal stiffness [Unknown]
